FAERS Safety Report 5966164-3 (Version None)
Quarter: 2008Q4

REPORT INFORMATION
  Report Type: 
  Country: None (occurrence: None)
  Receive Date: 20081125
  Receipt Date: 20081113
  Transmission Date: 20090506
  Serious: Yes (Hospitalization)
  Sender: FDA-Public Use
  Company Number: IT-ROCHE-596969

PATIENT
  Sex: Female

DRUGS (7)
  1. TORADOL [Suspect]
     Indication: ARTHRALGIA
     Dosage: DOSAGE REGIMEN : 30 MG/DIE
     Route: 030
     Dates: start: 20080825, end: 20080830
  2. MOBIC [Suspect]
     Indication: ARTHRALGIA
     Dosage: DOSAGE REGIMEN : 15 MG/DIE
     Route: 030
     Dates: start: 20080901, end: 20080905
  3. TACHIPIRINA [Suspect]
     Dosage: FORMULATION : EFFERVESCENT TABLET
     Route: 048
     Dates: start: 20080901, end: 20080907
  4. SOTALEX [Concomitant]
     Indication: HYPERTENSION
     Route: 048
     Dates: start: 20080901, end: 20080905
  5. COMBISARTAN [Concomitant]
     Indication: HYPERTENSION
     Dosage: FORMULATION : TABLET FILM COATED.
     Route: 048
     Dates: start: 20080901, end: 20080905
  6. PLAQUENIL [Concomitant]
     Indication: RHEUMATOID ARTHRITIS
     Route: 048
     Dates: start: 20080401, end: 20080905
  7. DELTACORTENE [Concomitant]
     Route: 048
     Dates: start: 20080901, end: 20080905

REACTIONS (2)
  - DUODENITIS [None]
  - MELAENA [None]
